FAERS Safety Report 17228226 (Version 2)
Quarter: 2020Q1

REPORT INFORMATION
  Report Type: Report from Study
  Country: IT (occurrence: IT)
  Receive Date: 20200103
  Receipt Date: 20200111
  Transmission Date: 20200409
  Serious: Yes (Other)
  Sender: FDA-Public Use
  Company Number: IT-ACCORD-168289

PATIENT
  Age: 57 Year
  Sex: Female
  Weight: 54 kg

DRUGS (7)
  1. SIMECRIN [Concomitant]
     Indication: ABDOMINAL DISTENSION
     Dosage: STRENGTH: 40 MG
     Route: 048
  2. SIMECRIN [Concomitant]
     Dosage: STRENGTH: 40 MG
     Route: 048
  3. RIVOTRIL [Concomitant]
     Active Substance: CLONAZEPAM
     Indication: INSOMNIA
     Dosage: STRENGTH: 2.5 MG / ML
     Route: 048
  4. PACLITAXEL/PACLITAXEL LIPOSOME [Suspect]
     Active Substance: PACLITAXEL
     Indication: NEOPLASM MALIGNANT
     Route: 041
     Dates: start: 20191115
  5. PALEXIA [Concomitant]
     Active Substance: TAPENTADOL HYDROCHLORIDE
     Dosage: STRENGTH: 50 MG
     Route: 048
  6. PACLITAXEL/PACLITAXEL LIPOSOME [Suspect]
     Active Substance: PACLITAXEL
     Indication: NEOPLASM MALIGNANT
     Route: 042
     Dates: start: 20191031
  7. PALEXIA [Concomitant]
     Active Substance: TAPENTADOL HYDROCHLORIDE
     Indication: NEOPLASM MALIGNANT
     Dosage: STRENGTH: 50 MG
     Route: 048

REACTIONS (4)
  - Ascites [Recovering/Resolving]
  - Dyspnoea [Recovering/Resolving]
  - Asthenia [Recovering/Resolving]
  - Eating disorder [Recovering/Resolving]

NARRATIVE: CASE EVENT DATE: 20191121
